FAERS Safety Report 6244722-9 (Version None)
Quarter: 2009Q2

REPORT INFORMATION
  Report Type: 
  Country: None (occurrence: None)
  Receive Date: 20090619
  Receipt Date: 20090423
  Transmission Date: 20091009
  Serious: No
  Sender: FDA-Public Use
  Company Number: ALL1-2009-01109

PATIENT
  Age: 9 Year
  Sex: Female
  Weight: 28.1 kg

DRUGS (1)
  1. VYVANSE [Suspect]
     Indication: ATTENTION DEFICIT/HYPERACTIVITY DISORDER
     Dosage: 30 MG, 1X/DAY:QD, ORAL
     Route: 048
     Dates: start: 20090421, end: 20090422

REACTIONS (6)
  - ANOREXIA [None]
  - DISTURBANCE IN ATTENTION [None]
  - FLAT AFFECT [None]
  - INSOMNIA [None]
  - MALAISE [None]
  - TRICHOTILLOMANIA [None]
